FAERS Safety Report 9725203 (Version 2)
Quarter: 2013Q4

REPORT INFORMATION
  Report Type: Spontaneous
  Country: IT (occurrence: IT)
  Receive Date: 20131203
  Receipt Date: 20131209
  Transmission Date: 20140711
  Serious: Yes (Other)
  Sender: FDA-Public Use
  Company Number: IT-RANBAXY-2013RR-75761

PATIENT
  Age: 33 Year
  Sex: Male

DRUGS (1)
  1. AMOXICILLIN/CLAVULANIC ACID [Suspect]
     Indication: DYSURIA
     Dosage: 1 DOSAGE UNIT
     Route: 048
     Dates: start: 20131031, end: 20131031

REACTIONS (2)
  - Erythema [Recovering/Resolving]
  - Palatal oedema [Recovering/Resolving]
